FAERS Safety Report 13047352 (Version 2)
Quarter: 2016Q4

REPORT INFORMATION
  Report Type: Report from Study
  Country: None (occurrence: CA)
  Receive Date: 20161220
  Receipt Date: 20161227
  Transmission Date: 20170207
  Serious: Yes (Other)
  Sender: FDA-Public Use
  Company Number: CA-ABBVIE-16P-028-1806765-00

PATIENT
  Age: 47 Year
  Sex: Female
  Weight: 57.66 kg

DRUGS (1)
  1. LUPRON DEPOT [Suspect]
     Active Substance: LEUPROLIDE ACETATE
     Indication: ENDOMETRIOSIS
     Route: 030
     Dates: start: 20160531, end: 20160601

REACTIONS (7)
  - Endometriosis [Unknown]
  - Varicose veins pelvic [Unknown]
  - Bone pain [Unknown]
  - Fatigue [Unknown]
  - Drug ineffective [Unknown]
  - Pelvic pain [Unknown]
  - Depression [Unknown]

NARRATIVE: CASE EVENT DATE: 20161130
